FAERS Safety Report 18483882 (Version 1)
Quarter: 2020Q4

REPORT INFORMATION
  Report Type: Spontaneous
  Country: US (occurrence: US)
  Receive Date: 20201109
  Receipt Date: 20201109
  Transmission Date: 20210114
  Serious: Yes (Hospitalization, Other)
  Sender: FDA-Public Use
  Company Number: US-009507513-2011USA001866

PATIENT
  Sex: Female
  Weight: 42.2 kg

DRUGS (3)
  1. PRINIVIL [Suspect]
     Active Substance: LISINOPRIL
     Indication: BLOOD PRESSURE ABNORMAL
     Dosage: DOSE UNKNOWN
     Route: 048
     Dates: start: 201610, end: 201704
  2. SYMBICORT [Suspect]
     Active Substance: BUDESONIDE\FORMOTEROL FUMARATE DIHYDRATE
     Indication: CHRONIC OBSTRUCTIVE PULMONARY DISEASE
     Dosage: 160/4.5 MCG, 2 PUFFS, TWO TIMES A DAY
     Route: 055
     Dates: start: 2017
  3. ATENOLOL. [Suspect]
     Active Substance: ATENOLOL
     Indication: BLOOD PRESSURE ABNORMAL
     Dosage: UNK
     Route: 048
     Dates: start: 201602, end: 201704

REACTIONS (21)
  - Eye contusion [Recovered/Resolved]
  - Eye swelling [Recovered/Resolved]
  - Skin discolouration [Recovered/Resolved]
  - Lung disorder [Not Recovered/Not Resolved]
  - Mass [Recovered/Resolved]
  - Intentional product misuse [Not Recovered/Not Resolved]
  - Blood pressure increased [Recovered/Resolved]
  - Malaise [Unknown]
  - Headache [Recovered/Resolved]
  - Traumatic haemorrhage [Recovered/Resolved]
  - Drug delivery system malfunction [Unknown]
  - Therapeutic product effect delayed [Not Recovered/Not Resolved]
  - Nasopharyngitis [Unknown]
  - Feeling jittery [Not Recovered/Not Resolved]
  - Nervousness [Not Recovered/Not Resolved]
  - Head injury [Recovered/Resolved with Sequelae]
  - Swelling [Recovered/Resolved]
  - Fall [Recovered/Resolved with Sequelae]
  - Pneumonia [Recovered/Resolved]
  - Weight decreased [Not Recovered/Not Resolved]
  - Memory impairment [Recovered/Resolved with Sequelae]

NARRATIVE: CASE EVENT DATE: 2017
